FAERS Safety Report 22810257 (Version 2)
Quarter: 2024Q1

REPORT INFORMATION
  Report Type: Spontaneous
  Country: US (occurrence: US)
  Receive Date: 20230810
  Receipt Date: 20240209
  Transmission Date: 20240409
  Serious: No
  Sender: FDA-Public Use
  Company Number: US-PFIZER INC-202300271879

PATIENT
  Age: 64 Year
  Sex: Female

DRUGS (4)
  1. OXBRYTA [Suspect]
     Active Substance: VOXELOTOR
     Indication: Sickle cell anaemia with crisis
     Dosage: 2 TABLETS PER NIGHT, AFTER DINNER, EVERY NIGHT
  2. OXBRYTA [Suspect]
     Active Substance: VOXELOTOR
     Indication: Pain
  3. LISINOPRIL [Concomitant]
     Active Substance: LISINOPRIL
     Indication: Hypertension
     Dosage: UNK
  4. HYDROXYUREA [Concomitant]
     Active Substance: HYDROXYUREA
     Indication: Sickle cell disease
     Dosage: TAKES 2 CAPSULES EVERY OTHER DAY, 1 CAPSULE ON OPPOSITE

REACTIONS (1)
  - Off label use [Unknown]
